FAERS Safety Report 17056081 (Version 2)
Quarter: 2020Q1

REPORT INFORMATION
  Report Type: Spontaneous
  Country: JP (occurrence: JP)
  Receive Date: 20191121
  Receipt Date: 20200207
  Transmission Date: 20200409
  Serious: Yes (Hospitalization, Other)
  Sender: FDA-Public Use
  Company Number: JP-BRISTOL-MYERS SQUIBB COMPANY-BMS-2019-037912

PATIENT
  Age: 73 Year
  Sex: Male
  Weight: 70.9 kg

DRUGS (17)
  1. METHYCOBAL [Concomitant]
     Active Substance: METHYLCOBALAMIN
     Indication: NON-SMALL CELL LUNG CANCER RECURRENT
     Dosage: 500 MICROGRAM, Q8H
     Route: 048
     Dates: start: 20181217
  2. CALONAL [Concomitant]
     Active Substance: ACETAMINOPHEN
     Indication: NON-SMALL CELL LUNG CANCER RECURRENT
     Dosage: 400 MILLIGRAM, Q12H
     Route: 048
     Dates: start: 20180712
  3. MAGMITT [Concomitant]
     Active Substance: MAGNESIUM OXIDE
     Indication: NON-SMALL CELL LUNG CANCER RECURRENT
     Dosage: 660 MILLIGRAM, Q8H
     Route: 048
     Dates: start: 20180712
  4. DOMPERIDONE [Concomitant]
     Active Substance: DOMPERIDONE
     Indication: NON-SMALL CELL LUNG CANCER RECURRENT
     Dosage: 10 MILLIGRAM, Q8H
     Route: 048
     Dates: start: 20190131
  5. BAYASPIRIN [Concomitant]
     Active Substance: ASPIRIN
     Indication: ANGINA PECTORIS
     Dosage: 100 MILLIGRAM, EVERYDAY
     Route: 048
  6. AMLODIPINE [Concomitant]
     Active Substance: AMLODIPINE BESYLATE
     Indication: HYPERTENSION
     Dosage: 5 MILLIGRAM, Q12H
     Route: 048
  7. SENNARIDE [Concomitant]
     Active Substance: SENNOSIDES A AND B
     Indication: NON-SMALL CELL LUNG CANCER RECURRENT
     Dosage: 24 MILLIGRAM EVERYDAY
     Route: 048
     Dates: start: 20180712
  8. VALSARTAN. [Concomitant]
     Active Substance: VALSARTAN
     Indication: HYPERTENSION
     Dosage: 80 MILLIGRAM, Q12H
     Route: 048
  9. DOCETAXEL. [Concomitant]
     Active Substance: DOCETAXEL
     Indication: NON-SMALL CELL LUNG CANCER RECURRENT
     Dosage: UNK
     Route: 065
     Dates: start: 20190528, end: 20190721
  10. TRAMAL [Concomitant]
     Active Substance: TRAMADOL
     Indication: NON-SMALL CELL LUNG CANCER RECURRENT
     Dosage: 25 MILLIGRAM, Q8H
     Route: 048
     Dates: start: 20190131
  11. ISOSORBIDE DINITRATE. [Concomitant]
     Active Substance: ISOSORBIDE DINITRATE
     Indication: ANGINA PECTORIS
     Dosage: 20 MILLIGRAM, Q12H
     Route: 048
  12. NICORANDIL [Concomitant]
     Active Substance: NICORANDIL
     Indication: ANGINA PECTORIS
     Dosage: 5 MILLIGRAM, Q8H
     Route: 048
  13. LOXOPROFEN [Concomitant]
     Active Substance: LOXOPROFEN
     Indication: NON-SMALL CELL LUNG CANCER RECURRENT
     Dosage: 60 MILLIGRAM, Q8H
     Route: 048
     Dates: start: 20190131
  14. TAKECAB [Concomitant]
     Active Substance: VONOPRAZAN FUMURATE
     Indication: ANGINA PECTORIS
     Dosage: 10 MILLIGRAM EVERYDAY
     Route: 048
  15. DILTIAZEM HYDROCHLORIDE. [Concomitant]
     Active Substance: DILTIAZEM HYDROCHLORIDE
     Indication: HYPERTENSION
     Dosage: 100 MILLIGRAM, Q12H
     Route: 048
  16. RAMUCIRUMAB [Concomitant]
     Active Substance: RAMUCIRUMAB
     Indication: NON-SMALL CELL LUNG CANCER RECURRENT
     Dosage: UNK
     Route: 065
     Dates: start: 20190528, end: 20190721
  17. OPDIVO [Suspect]
     Active Substance: NIVOLUMAB
     Indication: NON-SMALL CELL LUNG CANCER RECURRENT
     Dosage: 240 MILLIGRAM
     Route: 041
     Dates: start: 20190305, end: 20190305

REACTIONS (9)
  - Alanine aminotransferase increased [Recovered/Resolved]
  - Aspartate aminotransferase increased [Recovered/Resolved]
  - Gallbladder polyp [Unknown]
  - Hepatic cyst [Unknown]
  - Pulmonary oedema [Recovered/Resolved]
  - Gamma-glutamyltransferase increased [Recovered/Resolved]
  - Hepatic steatosis [Unknown]
  - Adrenal insufficiency [Recovering/Resolving]
  - Blood alkaline phosphatase increased [Recovered/Resolved]

NARRATIVE: CASE EVENT DATE: 20190325
